FAERS Safety Report 6249018-7 (Version None)
Quarter: 2009Q2

REPORT INFORMATION
  Report Type: 
  Country: None (occurrence: None)
  Receive Date: 20090624
  Receipt Date: 20090608
  Transmission Date: 20091009
  Serious: Yes (Hospitalization)
  Sender: FDA-Public Use
  Company Number: 2009-0326

PATIENT
  Age: 61 Year
  Sex: Female

DRUGS (4)
  1. SOMATULINE L.P.              (LANREOTIDE ACETATE) [Suspect]
     Indication: GASTROINTESTINAL DISORDER
     Dosage: 120 MG, 1 IN 1 M SUBCUTANEOUS
     Route: 058
     Dates: start: 20090215
  2. INFLIXIMAB (INFLIXIMAB) [Concomitant]
  3. LEVOTHYROX (LEVOTHYROXINE SODIUM) [Concomitant]
  4. VITAMIN B12 [Concomitant]

REACTIONS (14)
  - BLOOD ALBUMIN DECREASED [None]
  - CHEILITIS [None]
  - ECZEMA [None]
  - HYPOMAGNESAEMIA [None]
  - HYPOPARATHYROIDISM [None]
  - HYPOSIDERAEMIA [None]
  - MALABSORPTION [None]
  - NEUROMYOPATHY [None]
  - NORMOCHROMIC NORMOCYTIC ANAEMIA [None]
  - PARAESTHESIA [None]
  - TETANY [None]
  - VITAMIN B1 DEFICIENCY [None]
  - VITAMIN B12 DECREASED [None]
  - VITAMIN B6 DEFICIENCY [None]
